FAERS Safety Report 26158989 (Version 2)
Quarter: 2025Q4

REPORT INFORMATION
  Report Type: Spontaneous
  Country: US (occurrence: None)
  Receive Date: 20251215
  Receipt Date: 20251222
  Transmission Date: 20260117
  Serious: Yes (Other)
  Sender: CHIESI
  Company Number: US-CHIESI-2025CHF08926

PATIENT
  Sex: Male

DRUGS (3)
  1. KENGREAL [Suspect]
     Active Substance: CANGRELOR
     Indication: Percutaneous coronary intervention
     Dosage: 30 MICROGRAM/KILOGRAM
  2. KENGREAL [Suspect]
     Active Substance: CANGRELOR
     Indication: Off label use
     Dosage: 4 MICROGRAM/KILOGRAM
  3. KENGREAL [Suspect]
     Active Substance: CANGRELOR
     Dosage: 0.75 MICROGRAM/KILOGRAM

REACTIONS (5)
  - Thrombosis [Unknown]
  - Product dose omission issue [Unknown]
  - Off label use [Unknown]
  - Off label use [Unknown]
  - Off label use [Unknown]
